FAERS Safety Report 6678099-1 (Version None)
Quarter: 2010Q2

REPORT INFORMATION
  Report Type: 
  Country: None (occurrence: None)
  Receive Date: 20100412
  Receipt Date: 20100406
  Transmission Date: 20101027
  Serious: Yes (Hospitalization)
  Sender: FDA-Public Use
  Company Number: SG-ROCHE-445668

PATIENT
  Sex: Male
  Weight: 59.9 kg

DRUGS (6)
  1. BEVACIZUMAB [Suspect]
     Dosage: FORM: LIQUID
     Route: 042
     Dates: start: 20051017, end: 20060405
  2. OXALIPLATIN [Suspect]
     Dosage: FORM: LIQUID
     Route: 042
     Dates: start: 20051017, end: 20060405
  3. FLUOROURACIL [Suspect]
     Dosage: FORM:LIQUID
     Route: 042
     Dates: start: 20051017, end: 20060406
  4. FLUOROURACIL [Suspect]
     Dosage: DOSE FORM: LIQUID
     Route: 042
  5. FLUOROURACIL [Suspect]
     Dosage: FREQUENCY: 2 WEEKLY OVER 22 HOURS, FORM: LIQUID, PERMANENTLY DISCONTINUED
     Route: 042
     Dates: end: 20060425
  6. FERROUS FUMARATE [Concomitant]
     Dates: start: 20050405

REACTIONS (1)
  - BRONCHOPULMONARY ASPERGILLOSIS [None]
